FAERS Safety Report 4968596-9 (Version None)
Quarter: 2006Q2

REPORT INFORMATION
  Report Type: 
  Country: None (occurrence: None)
  Receive Date: 20060411
  Receipt Date: 20060403
  Transmission Date: 20061013
  Serious: Yes (Hospitalization)
  Sender: FDA-Public Use
  Company Number: JP-BOEHRINGER INGELHEIM PHARMACEUTICALS, INC.-2006-BP-03934YA

PATIENT
  Age: 67 Year
  Sex: Male

DRUGS (3)
  1. TAMSULOSIN HCL [Suspect]
     Indication: BENIGN PROSTATIC HYPERPLASIA
     Route: 048
  2. DICKININ [Concomitant]
     Indication: NASOPHARYNGITIS
     Route: 048
  3. NALIDIXIC ACID [Concomitant]
     Indication: NASOPHARYNGITIS
     Route: 048

REACTIONS (14)
  - ABDOMINAL MASS [None]
  - BLISTER [None]
  - BLOOD BICARBONATE DECREASED [None]
  - BLOOD PH DECREASED [None]
  - CONDITION AGGRAVATED [None]
  - DRUG ERUPTION [None]
  - ERYTHEMA [None]
  - HYDRONEPHROSIS [None]
  - NASOPHARYNGITIS [None]
  - NEPHRITIS INTERSTITIAL [None]
  - NEPHROPATHY [None]
  - PROTEIN URINE PRESENT [None]
  - RENAL IMPAIRMENT [None]
  - SKIN EXFOLIATION [None]
